FAERS Safety Report 20634585 (Version 1)
Quarter: 2022Q1

REPORT INFORMATION
  Report Type: Spontaneous
  Country: None (occurrence: US)
  Receive Date: 20220325
  Receipt Date: 20220325
  Transmission Date: 20220423
  Serious: No
  Sender: FDA-Public Use
  Company Number: US-Ajanta Pharma USA Inc.-2127104

PATIENT

DRUGS (1)
  1. CHOLESTYRAMINE [Suspect]
     Active Substance: CHOLESTYRAMINE
     Indication: Product used for unknown indication

REACTIONS (4)
  - Oropharyngeal discomfort [Unknown]
  - Foreign body in throat [Unknown]
  - Product solubility abnormal [Unknown]
  - Product substitution issue [Unknown]
